FAERS Safety Report 5381290-8 (Version None)
Quarter: 2007Q3

REPORT INFORMATION
  Report Type: 
  Country: None (occurrence: None)
  Receive Date: 20070702
  Receipt Date: 20060606
  Transmission Date: 20080115
  Serious: Yes (Hospitalization)
  Sender: FDA-Public Use
  Company Number: SUS1-2006-00522

PATIENT
  Age: 76 Year
  Sex: Female

DRUGS (4)
  1. PENTASA [Suspect]
     Indication: COLITIS ULCERATIVE
     Dates: start: 20060128, end: 20060215
  2. SULFASALAZIN (SULFASALAZINE) [Concomitant]
  3. SPIRONOLACTONE [Concomitant]
  4. METOPROLOL SUCCINATE [Concomitant]

REACTIONS (2)
  - NAUSEA [None]
  - VOMITING [None]
